FAERS Safety Report 16261748 (Version 2)
Quarter: 2019Q2

REPORT INFORMATION
  Report Type: Spontaneous
  Country: SV (occurrence: SV)
  Receive Date: 20190501
  Receipt Date: 20190516
  Transmission Date: 20190711
  Serious: Yes (Life-Threatening, Hospitalization)
  Sender: FDA-Public Use
  Company Number: SV-ELI_LILLY_AND_COMPANY-SV201904016538

PATIENT
  Age: 22 Year
  Sex: Female
  Weight: 58.96 kg

DRUGS (4)
  1. ZYPREXA [Suspect]
     Active Substance: OLANZAPINE
     Indication: MAJOR DEPRESSION
     Dosage: UNK, UNKNOWN
     Route: 030
     Dates: start: 20190424
  2. SERTRALINE [Concomitant]
     Active Substance: SERTRALINE HYDROCHLORIDE
     Indication: SOCIAL ANXIETY DISORDER
     Dosage: 100 MG, EACH EVENING
     Route: 065
  3. CLONAZEPAM. [Concomitant]
     Active Substance: CLONAZEPAM
     Indication: SOCIAL ANXIETY DISORDER
     Dosage: 2 MG, EACH EVENING
     Route: 065
  4. ZYPREXA [Suspect]
     Active Substance: OLANZAPINE
     Indication: SUICIDAL BEHAVIOUR

REACTIONS (1)
  - Shock [Unknown]

NARRATIVE: CASE EVENT DATE: 20190424
